FAERS Safety Report 4509510-X (Version None)
Quarter: 2004Q4

REPORT INFORMATION
  Report Type: 
  Country: None (occurrence: None)
  Receive Date: 20041119
  Receipt Date: 20041026
  Transmission Date: 20050328
  Serious: Yes (Other)
  Sender: FDA-Public Use
  Company Number: 2004241318US

PATIENT
  Age: 26 Year
  Sex: Male
  Weight: 90.7 kg

DRUGS (4)
  1. DOSTINEX [Suspect]
     Indication: PITUITARY TUMOUR
     Dosage: 1.5 MG, TWICE WEEKLY, ORAL
     Route: 048
     Dates: start: 20000101
  2. PROTEIN DRINK [Suspect]
  3. LYSINE (LYSINE) [Suspect]
  4. ACIPHEX [Concomitant]

REACTIONS (4)
  - BLOOD PROLACTIN INCREASED [None]
  - DRUG INTERACTION [None]
  - NEOPLASM PROGRESSION [None]
  - PITUITARY TUMOUR [None]
